FAERS Safety Report 23242555 (Version 3)
Quarter: 2023Q4

REPORT INFORMATION
  Report Type: Spontaneous
  Country: FR (occurrence: FR)
  Receive Date: 20231129
  Receipt Date: 20231219
  Transmission Date: 20240110
  Serious: Yes (Hospitalization, Congenital Anomaly)
  Sender: FDA-Public Use
  Company Number: FR-BIOGEN-2023BI01237735

PATIENT
  Age: 0 Year

DRUGS (1)
  1. TYSABRI [Suspect]
     Active Substance: NATALIZUMAB
     Indication: Maternal exposure timing unspecified
     Route: 050
     Dates: end: 20230120

REACTIONS (4)
  - Infantile spasms [Not Recovered/Not Resolved]
  - Congenital arterial occlusion [Not Recovered/Not Resolved]
  - Congenital brain damage [Not Recovered/Not Resolved]
  - Foetal exposure during pregnancy [Recovered/Resolved]

NARRATIVE: CASE EVENT DATE: 20231111
